FAERS Safety Report 12209035 (Version 2)
Quarter: 2016Q2

REPORT INFORMATION
  Report Type: Spontaneous
  Country: DE (occurrence: DE)
  Receive Date: 20160324
  Receipt Date: 20160411
  Transmission Date: 20160815
  Serious: Yes (Life-Threatening, Hospitalization, Disabling)
  Sender: FDA-Public Use
  Company Number: DE-JNJFOC-20160317487

PATIENT
  Age: 78 Year
  Sex: Male

DRUGS (4)
  1. VALPROATE [Suspect]
     Active Substance: VALPROIC ACID
     Indication: STATUS EPILEPTICUS
     Route: 065
  2. KEPPRA [Concomitant]
     Active Substance: LEVETIRACETAM
     Dosage: (1-0-1)
     Route: 048
     Dates: start: 20160223
  3. IMBRUVICA [Suspect]
     Active Substance: IBRUTINIB
     Indication: CHRONIC LYMPHOCYTIC LEUKAEMIA
     Route: 048
     Dates: start: 20150609, end: 20160316
  4. VIMPAT [Concomitant]
     Active Substance: LACOSAMIDE
     Dosage: (1-0-1)
     Route: 048
     Dates: start: 20160223

REACTIONS (9)
  - Hemiparesis [Recovered/Resolved]
  - Cerebral haemorrhage [Recovering/Resolving]
  - Encephalitis [Recovering/Resolving]
  - Subarachnoid haemorrhage [Recovered/Resolved]
  - Off label use [Recovered/Resolved]
  - Fall [Unknown]
  - Cerebral hygroma [Recovering/Resolving]
  - Status epilepticus [Recovered/Resolved]
  - Incorrect dose administered [Recovered/Resolved]

NARRATIVE: CASE EVENT DATE: 20150609
